FAERS Safety Report 9990022 (Version 1)
Quarter: 2014Q1

REPORT INFORMATION
  Report Type: Report from Study
  Country: US (occurrence: US)
  Receive Date: 20140310
  Receipt Date: 20140310
  Transmission Date: 20141002
  Serious: No
  Sender: FDA-Public Use
  Company Number: US-ABBVIE-13P-163-1136268-00

PATIENT
  Age: 69 Year
  Sex: Female

DRUGS (16)
  1. HUMIRA [Suspect]
     Indication: CROHN^S DISEASE
     Dosage: LOADING DOSE
     Dates: start: 201212
  2. HUMIRA [Suspect]
  3. HUMIRA [Suspect]
  4. ZOLOFT [Suspect]
     Indication: ANXIETY
     Dates: start: 201306
  5. ZOLOFT [Suspect]
     Indication: PANIC ATTACK
  6. AMLODIPINE [Concomitant]
     Indication: HYPERTENSION
  7. IMURAN [Concomitant]
     Indication: CROHN^S DISEASE
  8. PRILOSEC [Concomitant]
     Indication: GASTRIC DISORDER
  9. VITAMIN B12 [Concomitant]
     Indication: MALABSORPTION
  10. CORTIFOAM [Concomitant]
     Indication: PROCTALGIA
  11. CORTIFOAM [Concomitant]
     Indication: RECTAL HAEMORRHAGE
  12. PREDNISONE [Concomitant]
     Indication: PRODUCT USED FOR UNKNOWN INDICATION
     Dosage: TAPER 1/2 PILL VERY TEN DAYS
     Dates: end: 201301
  13. ALPRAZOLAM [Concomitant]
     Indication: ANXIETY
     Dates: start: 201306
  14. ALPRAZOLAM [Concomitant]
     Indication: PANIC ATTACK
  15. METOPROLOL [Concomitant]
     Indication: HYPERTENSION
  16. METOPROLOL [Concomitant]
     Dates: start: 20130715

REACTIONS (12)
  - Proctalgia [Unknown]
  - Rectal haemorrhage [Unknown]
  - Panic attack [Unknown]
  - Anxiety [Unknown]
  - Arthralgia [Unknown]
  - Injection site warmth [Unknown]
  - Injection site nodule [Unknown]
  - Malaise [Unknown]
  - Blood pressure increased [Unknown]
  - Injection site swelling [Unknown]
  - Injection site erythema [Unknown]
  - Diarrhoea [Not Recovered/Not Resolved]
